FAERS Safety Report 24351856 (Version 1)
Quarter: 2024Q3

REPORT INFORMATION
  Report Type: Report from Study
  Country: RU (occurrence: RU)
  Receive Date: 20240923
  Receipt Date: 20240923
  Transmission Date: 20241017
  Serious: Yes (Other)
  Sender: BRAINTREE
  Company Number: RU-BRAINTREE LABORATORIES, INC.-2024BTE00604

PATIENT
  Age: 25 Year
  Sex: Female

DRUGS (1)
  1. MAGNESIUM SULFATE\POTASSIUM SULFATE\SODIUM SULFATE [Suspect]
     Active Substance: MAGNESIUM SULFATE\POTASSIUM SULFATE\SODIUM SULFATE
     Indication: Product used for unknown indication
     Dosage: UNSPECIFIED
     Route: 065
     Dates: start: 20240910, end: 20240911

REACTIONS (4)
  - Arrhythmia [Unknown]
  - Nausea [Unknown]
  - Trismus [Unknown]
  - Pyrexia [Unknown]

NARRATIVE: CASE EVENT DATE: 20240910
